FAERS Safety Report 17946687 (Version 2)
Quarter: 2021Q4

REPORT INFORMATION
  Report Type: Spontaneous
  Country: US (occurrence: US)
  Receive Date: 20200626
  Receipt Date: 20211003
  Transmission Date: 20220303
  Serious: Yes (Other)
  Sender: FDA-Public Use
  Company Number: US-SAARTEMIS-SAC202006230187

PATIENT
  Age: 64 Year
  Sex: Male

DRUGS (1)
  1. ZANTAC [Suspect]
     Active Substance: RANITIDINE HYDROCHLORIDE
     Indication: Erosive oesophagitis
     Dosage: UNK, QD
     Route: 065
     Dates: start: 199301, end: 200903

REACTIONS (1)
  - Lung carcinoma cell type unspecified stage IV [Unknown]

NARRATIVE: CASE EVENT DATE: 20090301
